FAERS Safety Report 21830294 (Version 3)
Quarter: 2023Q1

REPORT INFORMATION
  Report Type: Report from Study
  Country: US (occurrence: US)
  Receive Date: 20230106
  Receipt Date: 20230318
  Transmission Date: 20230418
  Serious: Yes (Hospitalization, Other)
  Sender: FDA-Public Use
  Company Number: US-ABBVIE-4257594

PATIENT
  Sex: Female

DRUGS (1)
  1. HUMIRA [Suspect]
     Active Substance: ADALIMUMAB
     Indication: Psoriatic arthropathy
     Route: 058
     Dates: start: 20170103

REACTIONS (6)
  - Arterial occlusive disease [Recovering/Resolving]
  - Pain [Not Recovered/Not Resolved]
  - Blood potassium abnormal [Unknown]
  - Cardiac disorder [Unknown]
  - Loss of consciousness [Unknown]
  - Hypertension [Unknown]
